FAERS Safety Report 5029116-6 (Version None)
Quarter: 2006Q2

REPORT INFORMATION
  Report Type: 
  Country: None (occurrence: None)
  Receive Date: 20060619
  Receipt Date: 20060310
  Transmission Date: 20061013
  Serious: Yes (Death, Hospitalization)
  Sender: FDA-Public Use
  Company Number: US-BRISTOL-MYERS SQUIBB COMPANY-13310099

PATIENT
  Age: 84 Year
  Sex: Male
  Weight: 79 kg

DRUGS (7)
  1. SINEMET [Suspect]
     Indication: PARKINSON'S DISEASE
     Route: 048
     Dates: start: 20020101, end: 20060101
  2. ACCURETIC [Concomitant]
     Dates: start: 19980101
  3. ASPIRIN [Concomitant]
     Dates: start: 19980101
  4. LIPITOR [Concomitant]
  5. REMINYL [Concomitant]
  6. SYNTHROID [Concomitant]
  7. GARLIC [Concomitant]

REACTIONS (3)
  - CARDIO-RESPIRATORY ARREST [None]
  - URINARY TRACT INFECTION [None]
  - UROSEPSIS [None]
